FAERS Safety Report 12115589 (Version 1)
Quarter: 2016Q1

REPORT INFORMATION
  Report Type: Spontaneous
  Country: US (occurrence: US)
  Receive Date: 20160225
  Receipt Date: 20160225
  Transmission Date: 20160526
  Serious: Yes (Other)
  Sender: FDA-Public Use
  Company Number: US-MYLANLABS-2015M1004745

PATIENT
  Sex: Female
  Weight: 75.28 kg

DRUGS (1)
  1. ISOTRETINOIN [Suspect]
     Active Substance: ISOTRETINOIN
     Indication: ACNE
     Dosage: 40 MG, QD
     Route: 048
     Dates: start: 20141208, end: 20150206

REACTIONS (1)
  - Benign intracranial hypertension [Recovering/Resolving]

NARRATIVE: CASE EVENT DATE: 2015
